FAERS Safety Report 4597893-4 (Version None)
Quarter: 2005Q1

REPORT INFORMATION
  Report Type: 
  Country: None (occurrence: None)
  Receive Date: 20050301
  Receipt Date: 20050219
  Transmission Date: 20050727
  Serious: Yes (Death)
  Sender: FDA-Public Use
  Company Number: 2005-BP-02657RO

PATIENT
  Age: 15 Month

DRUGS (1)
  1. LORAZEPAM INTENSOL [Suspect]
     Dosage: 0.8 ML Q 2 HOUR X 3 DOSES (SEE TEXT), IV
     Route: 042
     Dates: start: 20050218, end: 20050218

REACTIONS (3)
  - HEART RATE INCREASED [None]
  - IRRITABILITY [None]
  - MEDICATION ERROR [None]
